FAERS Safety Report 25382622 (Version 1)
Quarter: 2025Q2

REPORT INFORMATION
  Report Type: Report from Study
  Country: US (occurrence: US)
  Receive Date: 20250601
  Receipt Date: 20250601
  Transmission Date: 20250717
  Serious: Yes (Hospitalization)
  Sender: ABBVIE
  Company Number: US-ABBVIE-6305673

PATIENT
  Age: 9 Year
  Sex: Female

DRUGS (1)
  1. LUPRON [Suspect]
     Active Substance: LEUPROLIDE ACETATE
     Indication: Hyperpituitarism
     Dosage: DEPOT-PED
     Route: 030
     Dates: start: 20231107

REACTIONS (1)
  - Ulcer [Unknown]

NARRATIVE: CASE EVENT DATE: 20250501
